FAERS Safety Report 6801329-X (Version None)
Quarter: 2010Q2

REPORT INFORMATION
  Report Type: 
  Country: None (occurrence: None)
  Receive Date: 20100629
  Receipt Date: 20100618
  Transmission Date: 20101027
  Serious: Yes (Hospitalization)
  Sender: FDA-Public Use
  Company Number: A0718702A

PATIENT
  Age: 84 Year
  Sex: Male
  Weight: 77.3 kg

DRUGS (5)
  1. AVANDIA [Suspect]
     Indication: TYPE 2 DIABETES MELLITUS
     Dosage: 8MG PER DAY
     Dates: start: 20030409, end: 20060801
  2. AVANDAMET [Suspect]
     Indication: DIABETES MELLITUS
     Dates: start: 20030409, end: 20060801
  3. AVANDARYL [Suspect]
     Indication: DIABETES MELLITUS
     Dates: start: 20030409, end: 20060801
  4. HUMALOG [Concomitant]
     Dates: start: 20060601, end: 20060603
  5. LANTUS [Concomitant]
     Dates: start: 20060101

REACTIONS (37)
  - ACQUIRED DIAPHRAGMATIC EVENTRATION [None]
  - ACTIVITIES OF DAILY LIVING IMPAIRED [None]
  - ACUTE CORONARY SYNDROME [None]
  - ACUTE MYOCARDIAL INFARCTION [None]
  - ANGINA PECTORIS [None]
  - ANXIETY [None]
  - AORTIC VALVE SCLEROSIS [None]
  - AORTIC VALVE STENOSIS [None]
  - ARRHYTHMIA [None]
  - ARTERIOSCLEROSIS [None]
  - ATRIOVENTRICULAR BLOCK FIRST DEGREE [None]
  - BALANCE DISORDER [None]
  - BRADYCARDIA [None]
  - CARDIAC ANEURYSM [None]
  - CARDIAC FAILURE CONGESTIVE [None]
  - CARDIAC VALVE DISEASE [None]
  - CARDIOVASCULAR DISORDER [None]
  - CEREBRAL ATROPHY [None]
  - CEREBROVASCULAR ACCIDENT [None]
  - CORONARY ARTERY DISEASE [None]
  - DEHYDRATION [None]
  - DEPRESSION [None]
  - FATIGUE [None]
  - FEAR OF DISEASE [None]
  - HYPERTENSION [None]
  - ISCHAEMIC CEREBRAL INFARCTION [None]
  - LEFT ATRIAL DILATATION [None]
  - MITRAL VALVE CALCIFICATION [None]
  - MYOCARDIAL INFARCTION [None]
  - MYOCARDIAL ISCHAEMIA [None]
  - PNEUMONIA [None]
  - PROSTATE CANCER [None]
  - RENAL CYST [None]
  - RENAL FAILURE ACUTE [None]
  - VASCULAR CALCIFICATION [None]
  - VASCULAR DEMENTIA [None]
  - VENTRICULAR HYPERTROPHY [None]
